FAERS Safety Report 6040246-2 (Version None)
Quarter: 2009Q1

REPORT INFORMATION
  Report Type: 
  Country: None (occurrence: None)
  Receive Date: 20090116
  Receipt Date: 20080125
  Transmission Date: 20090719
  Serious: No
  Sender: FDA-Public Use
  Company Number: US-BRISTOL-MYERS SQUIBB COMPANY-14053896

PATIENT
  Age: 43 Year
  Sex: Female
  Weight: 69 kg

DRUGS (4)
  1. ABILIFY [Suspect]
     Indication: BIPOLAR DISORDER
     Route: 048
  2. TRAZODONE HCL [Concomitant]
     Indication: INSOMNIA
  3. ZOLOFT [Concomitant]
  4. VISTARIL [Concomitant]

REACTIONS (8)
  - ANOREXIA [None]
  - HYPOAESTHESIA [None]
  - INSOMNIA [None]
  - MUSCLE SPASMS [None]
  - NASOPHARYNGITIS [None]
  - RESTLESSNESS [None]
  - VISION BLURRED [None]
  - WEIGHT DECREASED [None]
